FAERS Safety Report 23290192 (Version 1)
Quarter: 2023Q4

REPORT INFORMATION
  Report Type: Report from Study
  Country: CA (occurrence: CA)
  Receive Date: 20231213
  Receipt Date: 20231213
  Transmission Date: 20240110
  Serious: Yes (Other)
  Sender: FDA-Public Use
  Company Number: CA-JNJFOC-20230720088

PATIENT
  Age: 49 Year
  Sex: Female
  Weight: 105 kg

DRUGS (4)
  1. REMICADE [Suspect]
     Active Substance: INFLIXIMAB
     Indication: Crohn^s disease
     Route: 041
     Dates: start: 20090301
  2. REMICADE [Suspect]
     Active Substance: INFLIXIMAB
     Dosage: THE PATIENT HAD RECEIVED 500 MG REMICADE INFUSION ON 08-JUL-2023 (SATURDAY)
     Route: 041
     Dates: start: 20090401
  3. REMICADE [Suspect]
     Active Substance: INFLIXIMAB
     Route: 041
     Dates: start: 20230711
  4. REMICADE [Suspect]
     Active Substance: INFLIXIMAB
     Route: 041
     Dates: start: 20231125

REACTIONS (7)
  - Aphthous ulcer [Recovering/Resolving]
  - Drug level decreased [Unknown]
  - Arthralgia [Unknown]
  - Psoriasis [Unknown]
  - Fatigue [Unknown]
  - Weight decreased [Unknown]
  - Wheezing [Unknown]

NARRATIVE: CASE EVENT DATE: 20230101
